FAERS Safety Report 8101048-6 (Version None)
Quarter: 2012Q1

REPORT INFORMATION
  Report Type: 
  Country: None (occurrence: None)
  Receive Date: 20120129
  Receipt Date: 20110926
  Transmission Date: 20120608
  Serious: No
  Sender: FDA-Public Use
  Company Number: US-ABBOTT-11P-163-0858698-00

PATIENT
  Sex: Female
  Weight: 59.928 kg

DRUGS (2)
  1. METHOTREXATE [Concomitant]
     Indication: RHEUMATOID ARTHRITIS
  2. HUMIRA [Suspect]
     Indication: RHEUMATOID ARTHRITIS
     Dates: start: 20020101

REACTIONS (4)
  - IMMUNE SYSTEM DISORDER [None]
  - NASOPHARYNGITIS [None]
  - RESPIRATORY TRACT INFECTION VIRAL [None]
  - HYPERSENSITIVITY [None]
